FAERS Safety Report 7293530-9 (Version None)
Quarter: 2011Q1

REPORT INFORMATION
  Report Type: 
  Country: None (occurrence: None)
  Receive Date: 20110204
  Receipt Date: 20110120
  Transmission Date: 20110831
  Serious: Yes (Other)
  Sender: FDA-Public Use
  Company Number: 2011000324

PATIENT
  Age: 77 Year
  Sex: Male
  Weight: 78.0187 kg

DRUGS (2)
  1. TARCEVA [Suspect]
     Indication: PANCREATIC CARCINOMA
     Dosage: (100 MG, QD), ORAL
     Route: 048
     Dates: start: 20110110, end: 20110117
  2. CHEMOTHERAPY [Concomitant]

REACTIONS (3)
  - GAIT DISTURBANCE [None]
  - PYREXIA [None]
  - HYPOTENSION [None]
